FAERS Safety Report 4453075-8 (Version None)
Quarter: 2004Q3

REPORT INFORMATION
  Report Type: 
  Country: None (occurrence: None)
  Receive Date: 20040813
  Receipt Date: 20040511
  Transmission Date: 20050211
  Serious: No
  Sender: FDA-Public Use
  Company Number: S04-USA-03291-01

PATIENT
  Age: 89 Year
  Sex: Female

DRUGS (9)
  1. NAMENDA [Suspect]
     Indication: DEMENTIA ALZHEIMER'S TYPE
     Dosage: 15 MG QD PO
     Route: 048
     Dates: start: 20040510
  2. NAMENDA [Suspect]
     Indication: DEMENTIA ALZHEIMER'S TYPE
     Dosage: 5 MG QD PO
     Route: 048
     Dates: start: 20040426, end: 20040502
  3. NAMENDA [Suspect]
     Indication: DEMENTIA ALZHEIMER'S TYPE
     Dosage: 10 MG QD PO
     Route: 048
     Dates: start: 20040503, end: 20040509
  4. ARICEPT [Concomitant]
  5. SYNTHROID [Concomitant]
  6. FOLTEX [Concomitant]
  7. ASPIRIN [Concomitant]
  8. IMDUR [Concomitant]
  9. DILTIAZEM [Concomitant]

REACTIONS (1)
  - MIDDLE INSOMNIA [None]
